FAERS Safety Report 7833715-3 (Version None)
Quarter: 2011Q4

REPORT INFORMATION
  Report Type: 
  Country: None (occurrence: None)
  Receive Date: 20111024
  Receipt Date: 20111011
  Transmission Date: 20120403
  Serious: Yes (Other)
  Sender: FDA-Public Use
  Company Number: US-BAYER-2011-081900

PATIENT
  Age: 37 Year
  Sex: Female
  Weight: 111.11 kg

DRUGS (4)
  1. YAZ [Suspect]
     Dosage: UNK
     Dates: start: 20080601, end: 20080101
  2. MOTRIN [Concomitant]
  3. YAZ [Suspect]
     Indication: PRODUCT USED FOR UNKNOWN INDICATION
     Dosage: UNK
     Dates: start: 20070801, end: 20080101
  4. YAZ [Suspect]
     Dosage: UNK
     Dates: start: 20070601, end: 20080101

REACTIONS (4)
  - PAIN [None]
  - CHOLECYSTITIS CHRONIC [None]
  - GALLBLADDER INJURY [None]
  - INJURY [None]
